FAERS Safety Report 21382126 (Version 1)
Quarter: 2022Q3

REPORT INFORMATION
  Report Type: Spontaneous
  Country: US (occurrence: US)
  Receive Date: 20220927
  Receipt Date: 20220927
  Transmission Date: 20221027
  Serious: No
  Sender: FDA-Public Use
  Company Number: US-AMGEN-USASP2022163676

PATIENT
  Sex: Female

DRUGS (2)
  1. KANJINTI [Suspect]
     Active Substance: TRASTUZUMAB-ANNS
     Indication: Product used for unknown indication
     Route: 065
  2. TRAZIMERA [Concomitant]
     Active Substance: TRASTUZUMAB-QYYP

REACTIONS (1)
  - Drug intolerance [Unknown]
